FAERS Safety Report 7637384-7 (Version None)
Quarter: 2011Q3

REPORT INFORMATION
  Report Type: 
  Country: None (occurrence: None)
  Receive Date: 20110726
  Receipt Date: 20110720
  Transmission Date: 20111222
  Serious: No
  Sender: FDA-Public Use
  Company Number: US-PFIZER INC-2011044416

PATIENT
  Sex: Female

DRUGS (4)
  1. VICODIN [Concomitant]
     Indication: ANALGESIC THERAPY
     Dosage: UNK
     Dates: start: 20060101, end: 20100101
  2. XANAX [Concomitant]
     Indication: ANXIETY
     Dosage: UNK
     Dates: start: 20060101, end: 20100101
  3. CHANTIX [Suspect]
     Indication: SMOKING CESSATION THERAPY
     Dosage: STARTER PACK
     Dates: start: 20071212, end: 20080801
  4. ZOMIG [Concomitant]
     Indication: MIGRAINE
     Dosage: UNK
     Dates: start: 20030101, end: 20090101

REACTIONS (1)
  - ANXIETY [None]
